FAERS Safety Report 10458604 (Version 1)
Quarter: 2014Q3

REPORT INFORMATION
  Report Type: Spontaneous
  Country: US (occurrence: None)
  Receive Date: 20140916
  Receipt Date: 20140916
  Transmission Date: 20150326
  Serious: Yes (Hospitalization)
  Sender: FDA-Public Use
  Company Number: None

PATIENT
  Age: 63 Year
  Sex: Male
  Weight: 75.2 kg

DRUGS (1)
  1. LENALIDOMIDE [Suspect]
     Active Substance: LENALIDOMIDE

REACTIONS (8)
  - Dyspnoea exertional [None]
  - Sinus tachycardia [None]
  - Bronchiolitis [None]
  - Chronic obstructive pulmonary disease [None]
  - Hypoaesthesia [None]
  - Emphysema [None]
  - Bronchitis chronic [None]
  - Sputum abnormal [None]

NARRATIVE: CASE EVENT DATE: 20140910
